FAERS Safety Report 7256421-5 (Version None)
Quarter: 2011Q1

REPORT INFORMATION
  Report Type: 
  Country: None (occurrence: None)
  Receive Date: 20110129
  Receipt Date: 20100625
  Transmission Date: 20110831
  Serious: No
  Sender: FDA-Public Use
  Company Number: US-ABBOTT-10P-163-0654507-00

PATIENT
  Sex: Female
  Weight: 61.29 kg

DRUGS (3)
  1. MIRTAZAPINE [Concomitant]
     Indication: DEPRESSION
     Route: 048
  2. HUMIRA [Suspect]
     Indication: PSORIASIS
     Route: 058
     Dates: start: 20090701
  3. METHOTREXATE [Concomitant]
     Indication: PSORIASIS

REACTIONS (3)
  - PSORIASIS [None]
  - SCRATCH [None]
  - PRURITUS [None]
